FAERS Safety Report 4903341-4 (Version None)
Quarter: 2006Q1

REPORT INFORMATION
  Report Type: 
  Country: None (occurrence: None)
  Receive Date: 20060206
  Receipt Date: 20060206
  Transmission Date: 20060701
  Serious: Yes (Hospitalization)
  Sender: FDA-Public Use
  Company Number: None

PATIENT
  Age: 56 Year
  Sex: Male
  Weight: 66.2252 kg

DRUGS (1)
  1. ASPIRIN [Suspect]
     Indication: TRANSIENT ISCHAEMIC ATTACK
     Dosage: 325 MG DAILY PO
     Route: 048

REACTIONS (3)
  - GASTROINTESTINAL INFLAMMATION [None]
  - SMALL INTESTINAL OBSTRUCTION [None]
  - SMALL INTESTINE ULCER [None]
